FAERS Safety Report 6687054-7 (Version None)
Quarter: 2010Q2

REPORT INFORMATION
  Report Type: 
  Country: None (occurrence: None)
  Receive Date: 20100419
  Receipt Date: 20100416
  Transmission Date: 20101027
  Serious: Yes (Life-Threatening, Hospitalization)
  Sender: FDA-Public Use
  Company Number: GB-CEPHALON-2010002097

PATIENT
  Sex: Female

DRUGS (4)
  1. TRISENOX [Suspect]
     Indication: ACUTE MYELOID LEUKAEMIA
     Route: 041
     Dates: start: 20091104, end: 20091203
  2. TRISENOX [Suspect]
     Indication: MYELODYSPLASTIC SYNDROME
  3. ATRA [Suspect]
     Indication: ACUTE MYELOID LEUKAEMIA
     Dates: start: 20091104, end: 20091203
  4. ATRA [Suspect]
     Indication: MYELODYSPLASTIC SYNDROME

REACTIONS (1)
  - INTESTINAL OBSTRUCTION [None]
